FAERS Safety Report 4875161-0 (Version None)
Quarter: 2006Q1

REPORT INFORMATION
  Report Type: 
  Country: None (occurrence: None)
  Receive Date: 20060104
  Receipt Date: 20051222
  Transmission Date: 20060701
  Serious: Yes (Other)
  Sender: FDA-Public Use
  Company Number: 2005125359

PATIENT
  Age: 74 Year
  Sex: Female
  Weight: 65.7716 kg

DRUGS (6)
  1. LIPITOR [Suspect]
     Indication: BLOOD CHOLESTEROL
     Dosage: 1 MG (10 MG, 1 IN 1 D), ORAL
     Route: 048
     Dates: start: 20050715, end: 20050901
  2. CLONIDINIE (CLONIDINE) [Concomitant]
  3. NAPROSYN [Concomitant]
  4. NORVASC [Concomitant]
  5. HYDROCHLOROTHIAZIDE/TRIAMTERENE (HYDROCHLOROTHIAZIDE, TRIAMTERENE) [Concomitant]
  6. GLUCOVANCE [Concomitant]

REACTIONS (9)
  - ARTHROPATHY [None]
  - ASTHENIA [None]
  - INTERVERTEBRAL DISC PROTRUSION [None]
  - MUSCLE SPASMS [None]
  - OSTEOARTHRITIS [None]
  - PAIN IN EXTREMITY [None]
  - SPINAL COLUMN STENOSIS [None]
  - TENDERNESS [None]
  - TREATMENT NONCOMPLIANCE [None]
